FAERS Safety Report 16441173 (Version 1)
Quarter: 2019Q2

REPORT INFORMATION
  Report Type: Spontaneous
  Country: ES (occurrence: ES)
  Receive Date: 20190617
  Receipt Date: 20190617
  Transmission Date: 20190711
  Serious: Yes (Other)
  Sender: FDA-Public Use
  Company Number: ES-TEVA-2019-ES-1064004

PATIENT
  Age: 58 Year
  Sex: Female

DRUGS (6)
  1. HIDROCORTISONA (54A) [Suspect]
     Active Substance: HYDROCORTISONE
     Dosage: 1-1-1
     Route: 047
     Dates: start: 2019
  2. IKERVIS 1 MG/ML COLIRIO EN EMULSION 30 ENVASES UNIDOSIS DE 0,3 ML [Suspect]
     Active Substance: CYCLOSPORINE
     Indication: DRY EYE
     Dosage: 1 DROP EVERY 24 HOURS AT NIGHT
     Route: 047
     Dates: start: 20190131, end: 20190215
  3. IBUPROFENO (1769A) [Suspect]
     Active Substance: IBUPROFEN
     Indication: COUGH
     Dosage: IT DOES NOT APPEAR IN ELECTRONIC CLINICAL RECORD
     Route: 048
     Dates: start: 2019
  4. BROMAZEPAM 6 MG [Concomitant]
     Route: 048
  5. NAPROXENO (2002A) [Suspect]
     Active Substance: NAPROXEN
     Indication: COUGH
     Dosage: IT DOES NOT APPEAR IN ELECTRONIC CLINICAL RECORD
     Route: 048
     Dates: start: 2019
  6. PROPALGINA [Suspect]
     Active Substance: ACETAMINOPHEN\ASCORBIC ACID\CHLORPHENIRAMINE MALEATE\DEXTROMETHORPHAN HYDROBROMIDE\PHENYLEPHRINE HYDROCHLORIDE
     Indication: COUGH
     Dosage: IT DOES NOT APPEAR IN ELECTRONIC CLINICAL RECORD
     Route: 048
     Dates: start: 2019

REACTIONS (2)
  - Angioedema [Recovered/Resolved]
  - Swelling face [Recovered/Resolved]

NARRATIVE: CASE EVENT DATE: 20190215
